FAERS Safety Report 25739972 (Version 2)
Quarter: 2025Q3

REPORT INFORMATION
  Report Type: Report from Study
  Country: EU (occurrence: EU)
  Receive Date: 20250829
  Receipt Date: 20250911
  Transmission Date: 20251020
  Serious: Yes (Hospitalization, Other)
  Sender: ABBVIE
  Company Number: EU-ABBVIE-6432247

PATIENT
  Age: 64 Year
  Sex: Male

DRUGS (2)
  1. CARBIDOPA\LEVODOPA [Suspect]
     Active Substance: CARBIDOPA\LEVODOPA
     Indication: Parkinson^s disease
     Dosage: MD: 10ML+3ML , CR: 2.8ML/H (14H), ED: 2.5ML
     Route: 050
     Dates: start: 20230509, end: 20250825
  2. CARBIDOPA\LEVODOPA [Suspect]
     Active Substance: CARBIDOPA\LEVODOPA
     Dosage: MD: 10ML+3ML , CR: 2.8ML/H (14H), ED: 2.5ML?FIST ADMIN DATE: 2025(RESUMED)
     Route: 050

REACTIONS (3)
  - Volvulus [Recovered/Resolved]
  - Abdominal pain [Unknown]
  - Stoma site hypergranulation [Unknown]

NARRATIVE: CASE EVENT DATE: 20250801
